FAERS Safety Report 20524419 (Version 2)
Quarter: 2022Q1

REPORT INFORMATION
  Report Type: Report from Study
  Country: US (occurrence: US)
  Receive Date: 20220228
  Receipt Date: 20220324
  Transmission Date: 20220423
  Serious: Yes (Hospitalization, Other)
  Sender: FDA-Public Use
  Company Number: US-SA-2021SA268402

PATIENT
  Age: 62 Year
  Sex: Female

DRUGS (8)
  1. DUPILUMAB [Suspect]
     Active Substance: DUPILUMAB
     Indication: Asthma
     Dosage: 400 MG, 1X
     Route: 058
     Dates: start: 20210701, end: 20210701
  2. DUPILUMAB [Suspect]
     Active Substance: DUPILUMAB
     Dosage: 200 MG, QOW
     Route: 058
     Dates: start: 20210715
  3. PREDNISONE [Suspect]
     Active Substance: PREDNISONE
     Indication: Asthma
     Dosage: 100 MG
     Route: 048
  4. PREDNISONE [Suspect]
     Active Substance: PREDNISONE
     Dosage: 40 MG, QID
     Route: 042
  5. PREDNISONE [Suspect]
     Active Substance: PREDNISONE
     Dosage: 40 MG, QW
     Route: 048
  6. DUONEB [Concomitant]
     Active Substance: ALBUTEROL SULFATE\IPRATROPIUM BROMIDE
     Dosage: UNK, 6ID
  7. BUDESONIDE\FORMOTEROL FUMARATE [Concomitant]
     Active Substance: BUDESONIDE\FORMOTEROL FUMARATE
  8. TRELEGY ELLIPTA [Concomitant]
     Active Substance: FLUTICASONE FUROATE\UMECLIDINIUM BROMIDE\VILANTEROL TRIFENATATE

REACTIONS (17)
  - Pneumonia [Recovering/Resolving]
  - Pneumonia [Recovering/Resolving]
  - Asthma [Not Recovered/Not Resolved]
  - Pulmonary congestion [Not Recovered/Not Resolved]
  - Cough [Not Recovered/Not Resolved]
  - Pneumonia [Recovering/Resolving]
  - Pneumonia [Unknown]
  - Hypoxia [Recovering/Resolving]
  - Asthma [Unknown]
  - Asthma [Recovering/Resolving]
  - Respiratory tract infection [Recovering/Resolving]
  - Oxygen saturation decreased [Unknown]
  - Emotional disorder [Unknown]
  - Poor quality sleep [Unknown]
  - Heart rate increased [Unknown]
  - Unevaluable event [Unknown]
  - Therapeutic response decreased [Unknown]

NARRATIVE: CASE EVENT DATE: 20210101
